FAERS Safety Report 15116107 (Version 4)
Quarter: 2018Q4

REPORT INFORMATION
  Report Type: Spontaneous
  Country: IT (occurrence: DE)
  Receive Date: 20180706
  Receipt Date: 20181129
  Transmission Date: 20190204
  Serious: Yes (Hospitalization, Other)
  Sender: FDA-Public Use
  Company Number: DE-AUROBINDO-AUR-APL-2017-07306

PATIENT
  Age: 53 Year
  Sex: Female

DRUGS (8)
  1. LAMOTRIGINE. [Suspect]
     Active Substance: LAMOTRIGINE
     Dosage: (INCREASED STEPWISE TO 600 MG)
     Route: 065
  2. CLORAZEPATE [Concomitant]
     Active Substance: CLORAZEPATE DIPOTASSIUM
     Indication: PRODUCT USED FOR UNKNOWN INDICATION
     Dosage: UNKNOWN
     Route: 065
  3. LEVETIRACETAM. [Concomitant]
     Active Substance: LEVETIRACETAM
     Indication: PARTIAL SEIZURES
     Dosage: 2500 MILLIGRAM (DAILY DOSE: 2500.000 (E2B UNIT: 003))
     Route: 065
  4. LAMOTRIGINE. [Suspect]
     Active Substance: LAMOTRIGINE
     Dosage: ()
     Route: 065
  5. LAMOTRIGINE. [Suspect]
     Active Substance: LAMOTRIGINE
     Indication: PARTIAL SEIZURES
     Dosage: 250 MILLIGRAM, DAILY (INCREASED TO 250 MG DAILY)
     Route: 048
  6. TOPIRAMATE. [Concomitant]
     Active Substance: TOPIRAMATE
     Indication: PARTIAL SEIZURES
     Dosage: UNK
     Route: 065
  7. LAMOTRIGINE. [Suspect]
     Active Substance: LAMOTRIGINE
     Dosage: 100 MILLIGRAM (DAILY DOSE: 100.000 (E2B UNIT: 003))
     Route: 065
  8. VALPROIC ACID. [Interacting]
     Active Substance: VALPROIC ACID
     Indication: PARTIAL SEIZURES
     Dosage: 900 MILLIGRAM
     Route: 065

REACTIONS (8)
  - Delusion [Recovered/Resolved]
  - Psychotic disorder [Recovered/Resolved]
  - Drug interaction [Recovered/Resolved]
  - Sleep disorder [Recovered/Resolved]
  - Drug level increased [Recovered/Resolved]
  - Substance-induced psychotic disorder [Recovered/Resolved]
  - Thinking abnormal [Recovered/Resolved]
  - Anticonvulsant drug level above therapeutic [Unknown]
